FAERS Safety Report 7815223-9 (Version None)
Quarter: 2011Q4

REPORT INFORMATION
  Report Type: 
  Country: None (occurrence: None)
  Receive Date: 20111014
  Receipt Date: 20111004
  Transmission Date: 20120403
  Serious: Yes (Hospitalization)
  Sender: FDA-Public Use
  Company Number: FR-JNJFOC-20110908949

PATIENT
  Sex: Male

DRUGS (3)
  1. INFLIXIMAB, RECOMBINANT [Suspect]
     Indication: CROHN'S DISEASE
     Dosage: 2 INFUSIONS
     Route: 042
     Dates: start: 20020929
  2. IMMUNOMODULATORS [Concomitant]
  3. INFLIXIMAB, RECOMBINANT [Suspect]
     Dosage: 2 INFUSIONS
     Route: 042
     Dates: start: 20051210

REACTIONS (5)
  - ANAPHYLACTIC SHOCK [None]
  - ILEOCOLECTOMY [None]
  - CROHN'S DISEASE [None]
  - INTESTINAL ANASTOMOSIS [None]
  - INTESTINAL RESECTION [None]
